FAERS Safety Report 8208917-7 (Version None)
Quarter: 2012Q1

REPORT INFORMATION
  Report Type: 
  Country: None (occurrence: None)
  Receive Date: 20120314
  Receipt Date: 20120228
  Transmission Date: 20120608
  Serious: Yes (Hospitalization)
  Sender: FDA-Public Use
  Company Number: SD-WATSON-2012-02691

PATIENT
  Age: 14 Year
  Sex: Male

DRUGS (1)
  1. PREDNISONE TAB [Suspect]
     Indication: NEPHROTIC SYNDROME
     Dosage: 80 MG, DAILY DIVIDED INTO 3 DOSES
     Route: 048

REACTIONS (1)
  - BRADYCARDIA [None]
